FAERS Safety Report 12735518 (Version 1)
Quarter: 2016Q3

REPORT INFORMATION
  Report Type: Spontaneous
  Country: US (occurrence: US)
  Receive Date: 20160912
  Receipt Date: 20160912
  Transmission Date: 20161109
  Serious: No
  Sender: FDA-Public Use
  Company Number: US-BAYER-2016-177041

PATIENT
  Age: 73 Year
  Sex: Male
  Weight: 80.73 kg

DRUGS (8)
  1. VITAMIN E [Concomitant]
     Active Substance: .ALPHA.-TOCOPHEROL
  2. ESTER C [Concomitant]
  3. IMURAN [Concomitant]
     Active Substance: AZATHIOPRINE
     Indication: ASTHMA
     Route: 048
  4. MULTAQ [Concomitant]
     Active Substance: DRONEDARONE
  5. MIRALAX [Suspect]
     Active Substance: POLYETHYLENE GLYCOL 3350
     Indication: CONSTIPATION PROPHYLAXIS
     Dosage: 70-80 % OF RECOMMENDED DOSE, UNK
     Route: 048
     Dates: start: 201601, end: 20160908
  6. PREVACID [Concomitant]
     Active Substance: LANSOPRAZOLE
  7. MESALAMINE. [Concomitant]
     Active Substance: MESALAMINE
  8. FISH OIL [Concomitant]
     Active Substance: FISH OIL

REACTIONS (2)
  - Drug ineffective [None]
  - Product use issue [None]

NARRATIVE: CASE EVENT DATE: 201601
